FAERS Safety Report 8002631-9 (Version None)
Quarter: 2011Q4

REPORT INFORMATION
  Report Type: 
  Country: None (occurrence: None)
  Receive Date: 20111222
  Receipt Date: 20111213
  Transmission Date: 20120403
  Serious: Yes (Hospitalization)
  Sender: FDA-Public Use
  Company Number: FR-GLAXOSMITHKLINE-B0768798A

PATIENT
  Sex: Female

DRUGS (5)
  1. LEVEMIR [Concomitant]
     Dosage: 1INJ PER DAY
  2. MIANSERINE [Concomitant]
     Dosage: 30MG PER DAY
  3. ACETAMINOPHEN [Concomitant]
     Dosage: 4G PER DAY
     Route: 048
  4. FUNGIZONE [Concomitant]
  5. ARIXTRA [Suspect]
     Indication: PRODUCT USED FOR UNKNOWN INDICATION
     Dosage: 2.5MG PER DAY
     Route: 058
     Dates: start: 20110620, end: 20110622

REACTIONS (1)
  - URTICARIA [None]
